FAERS Safety Report 18595721 (Version 2)
Quarter: 2020Q4

REPORT INFORMATION
  Report Type: Report from Study
  Country: US (occurrence: US)
  Receive Date: 20201209
  Receipt Date: 20201217
  Transmission Date: 20210114
  Serious: Yes (Death, Other)
  Sender: FDA-Public Use
  Company Number: US-AGIOS-2011US02301

PATIENT

DRUGS (1)
  1. TIBSOVO [Suspect]
     Active Substance: IVOSIDENIB
     Indication: ACUTE MYELOID LEUKAEMIA
     Dosage: 250 MILLIGRAM, 2 TABLETS (500 MG) DAILY
     Dates: start: 20201118, end: 20201214

REACTIONS (8)
  - Death [Fatal]
  - Pyrexia [Unknown]
  - Stomatitis [Unknown]
  - Decreased activity [Unknown]
  - Mouth swelling [Unknown]
  - Haemoglobin decreased [Unknown]
  - Night sweats [Unknown]
  - Fatigue [Unknown]
